FAERS Safety Report 4352720-5 (Version None)
Quarter: 2004Q2

REPORT INFORMATION
  Report Type: 
  Country: None (occurrence: None)
  Receive Date: 20040504
  Receipt Date: 20040430
  Transmission Date: 20050107
  Serious: Yes (Death, Hospitalization)
  Sender: FDA-Public Use
  Company Number: DEPFP-C-20040009

PATIENT
  Age: 72 Year
  Sex: Male

DRUGS (2)
  1. NAVELBINE [Suspect]
     Indication: NON-SMALL CELL LUNG CANCER
     Route: 042
     Dates: start: 20030911, end: 20031010
  2. CARBOPLATIN [Suspect]
     Indication: NON-SMALL CELL LUNG CANCER
     Dates: start: 20030904, end: 20031010

REACTIONS (7)
  - GENERAL PHYSICAL HEALTH DETERIORATION [None]
  - METASTATIC NEOPLASM [None]
  - NAUSEA [None]
  - NEOPLASM PROGRESSION [None]
  - OEDEMA PERIPHERAL [None]
  - PNEUMONIA [None]
  - VOMITING [None]
